FAERS Safety Report 9152735 (Version 2)
Quarter: 2013Q1

REPORT INFORMATION
  Report Type: Spontaneous
  Country: US (occurrence: US)
  Receive Date: 20130308
  Receipt Date: 20130320
  Transmission Date: 20140127
  Serious: No
  Sender: FDA-Public Use
  Company Number: US-009507513-1303USA003766

PATIENT
  Sex: Female

DRUGS (2)
  1. COSOPT [Suspect]
     Dosage: UNK
     Route: 047
  2. TRUSOPT [Suspect]
     Route: 047

REACTIONS (5)
  - Adverse event [Unknown]
  - Drug hypersensitivity [Unknown]
  - Ocular hyperaemia [Unknown]
  - Eye pruritus [Unknown]
  - Corneal disorder [Unknown]
